FAERS Safety Report 21054368 (Version 1)
Quarter: 2022Q3

REPORT INFORMATION
  Report Type: Report from Study
  Country: US (occurrence: US)
  Receive Date: 20220707
  Receipt Date: 20220707
  Transmission Date: 20221027
  Serious: Yes (Other)
  Sender: FDA-Public Use
  Company Number: US-NOVARTISPH-NVSC2022US152263

PATIENT
  Sex: Male

DRUGS (1)
  1. ENTRESTO [Suspect]
     Active Substance: SACUBITRIL\VALSARTAN
     Indication: Product used for unknown indication
     Dosage: 200 MG (97/103 MG: SACUBITRIL 97.2 MG, VALSARTAN 102.8 MG) (HIGHEST DOSE)
     Route: 065

REACTIONS (3)
  - Photosensitivity reaction [Recovering/Resolving]
  - Neck pain [Recovering/Resolving]
  - Musculoskeletal stiffness [Recovering/Resolving]
